FAERS Safety Report 20535180 (Version 1)
Quarter: 2022Q1

REPORT INFORMATION
  Report Type: Spontaneous
  Country: US (occurrence: None)
  Receive Date: 20220302
  Receipt Date: 20220302
  Transmission Date: 20220423
  Serious: No
  Sender: FDA-Public Use
  Company Number: US-ROCHE-2882116

PATIENT
  Age: 2 Year
  Sex: Female
  Weight: 11.350 kg

DRUGS (6)
  1. NUTROPIN [Suspect]
     Active Substance: SOMATROPIN
     Indication: Growth hormone deficiency
     Dosage: NUTROPIN PREFILLED PEN 5 MG/2 ML
     Route: 058
     Dates: start: 201908, end: 202101
  2. NUTROPIN [Suspect]
     Active Substance: SOMATROPIN
  3. NUTROPIN [Suspect]
     Active Substance: SOMATROPIN
     Dosage: NUTROPIN PREFILLED PEN 5 MG/2 ML
     Route: 058
     Dates: start: 202101, end: 202107
  4. NUTROPIN [Suspect]
     Active Substance: SOMATROPIN
  5. NUTROPIN [Suspect]
     Active Substance: SOMATROPIN
     Dosage: NUTROPIN PREFILLED PEN 5 MG/2 ML
     Route: 058
     Dates: start: 202107
  6. NUTROPIN [Suspect]
     Active Substance: SOMATROPIN

REACTIONS (3)
  - Needle issue [Unknown]
  - Incorrect dose administered [Unknown]
  - No adverse event [Unknown]

NARRATIVE: CASE EVENT DATE: 20210701
